FAERS Safety Report 14398193 (Version 1)
Quarter: 2018Q1

REPORT INFORMATION
  Report Type: Spontaneous
  Country: US (occurrence: US)
  Receive Date: 20180116
  Receipt Date: 20180116
  Transmission Date: 20180509
  Serious: Yes (Hospitalization)
  Sender: FDA-Public Use
  Company Number: US-AMGEN-USASP2018005176

PATIENT
  Age: 52 Year
  Sex: Female

DRUGS (1)
  1. ENBREL [Suspect]
     Active Substance: ETANERCEPT
     Indication: STILL^S DISEASE
     Dosage: 50 MG, QWK
     Route: 058
     Dates: start: 201710

REACTIONS (3)
  - Fracture [Unknown]
  - Off label use [Unknown]
  - Fall [Unknown]

NARRATIVE: CASE EVENT DATE: 201710
